FAERS Safety Report 10334093 (Version 1)
Quarter: 2014Q3

REPORT INFORMATION
  Report Type: Report from Study
  Country: FR (occurrence: None)
  Receive Date: 20140718
  Receipt Date: 20140718
  Transmission Date: 20150326
  Serious: Yes (Other)
  Sender: FDA-Public Use
  Company Number: 228649

PATIENT
  Age: 80 Year
  Sex: Female

DRUGS (2)
  1. DAIVOBET GEL (DAIVOBET) (GEL) [Suspect]
     Active Substance: BETAMETHASONE DIPROPIONATE\CALCIPOTRIENE
     Indication: PSORIASIS
     Route: 061
  2. DAIVOBET [Concomitant]
     Active Substance: BETAMETHASONE DIPROPIONATE\CALCIPOTRIENE

REACTIONS (2)
  - Paraesthesia [None]
  - Drug intolerance [None]

NARRATIVE: CASE EVENT DATE: 201404
